FAERS Safety Report 9654126 (Version 1)
Quarter: 2013Q4

REPORT INFORMATION
  Report Type: Spontaneous
  Country: US (occurrence: US)
  Receive Date: 20131029
  Receipt Date: 20131029
  Transmission Date: 20140711
  Serious: No
  Sender: FDA-Public Use
  Company Number: US-BIOGENIDEC-2013BI083275

PATIENT
  Age: 58 Year
  Sex: Female

DRUGS (18)
  1. TECFIDERA [Suspect]
     Indication: MULTIPLE SCLEROSIS
     Route: 048
     Dates: start: 20130712, end: 20130719
  2. TECFIDERA [Suspect]
     Indication: MULTIPLE SCLEROSIS
     Route: 048
     Dates: start: 20130720, end: 20130809
  3. LISINOPRIL [Concomitant]
  4. NYSTOP [Concomitant]
  5. PROMETHAZINE [Concomitant]
  6. GILENYA [Concomitant]
  7. CARTIA XT [Concomitant]
  8. OXYCODONE-APAP [Concomitant]
  9. B COMPLEX [Concomitant]
  10. LASIX [Concomitant]
  11. ESTRIOL [Concomitant]
  12. FENTANYL [Concomitant]
  13. XANAX [Concomitant]
  14. CALCIUM [Concomitant]
  15. CHOLECALCIFEROL [Concomitant]
  16. VOLTAREN [Concomitant]
  17. OXYBUTYNIN [Concomitant]
  18. VITAMIN B-12 [Concomitant]

REACTIONS (1)
  - Palpitations [Unknown]
